FAERS Safety Report 6694260-4 (Version None)
Quarter: 2010Q2

REPORT INFORMATION
  Report Type: 
  Country: None (occurrence: None)
  Receive Date: 20100421
  Receipt Date: 20100412
  Transmission Date: 20101027
  Serious: Yes (Other)
  Sender: FDA-Public Use
  Company Number: 2007-168881-NL

PATIENT
  Age: 30 Year
  Sex: Female
  Weight: 93.4 kg

DRUGS (2)
  1. IMPLANON [Suspect]
     Indication: DRUG USE FOR UNKNOWN INDICATION
     Dosage: 1 DF;
     Dates: start: 20071023, end: 20071119
  2. ZOLOFT [Concomitant]

REACTIONS (4)
  - PREGNANCY WITH IMPLANT CONTRACEPTIVE [None]
  - RETAINED PLACENTA OR MEMBRANES [None]
  - STILLBIRTH [None]
  - TWIN PREGNANCY [None]
